FAERS Safety Report 9743540 (Version 3)
Quarter: 2014Q1

REPORT INFORMATION
  Report Type: Spontaneous
  Country: US (occurrence: US)
  Receive Date: 20131210
  Receipt Date: 20140306
  Transmission Date: 20141002
  Serious: Yes (Hospitalization, Other)
  Sender: FDA-Public Use
  Company Number: US-TEVA-448809USA

PATIENT
  Age: 61 Year
  Sex: Male
  Weight: 131.66 kg

DRUGS (1)
  1. AZITHROMYCIN [Suspect]
     Indication: NASOPHARYNGITIS
     Dates: start: 201206

REACTIONS (2)
  - Myocardial infarction [Recovered/Resolved]
  - Cardiac disorder [Recovering/Resolving]
